FAERS Safety Report 6360713-1 (Version None)
Quarter: 2009Q3

REPORT INFORMATION
  Report Type: 
  Country: None (occurrence: None)
  Receive Date: 20090918
  Receipt Date: 20090909
  Transmission Date: 20100115
  Serious: Yes (Other)
  Sender: FDA-Public Use
  Company Number: US-BIOGENIDEC-2009BI029166

PATIENT
  Age: 30 Year
  Sex: Female

DRUGS (3)
  1. AVONEX [Suspect]
     Indication: MULTIPLE SCLEROSIS
     Route: 030
     Dates: start: 20031101, end: 20040201
  2. AVONEX [Suspect]
     Route: 030
     Dates: start: 20050201, end: 20060801
  3. AVONEX [Suspect]
     Route: 030
     Dates: start: 20070301, end: 20081201

REACTIONS (1)
  - STILLBIRTH [None]
